FAERS Safety Report 6288685-9 (Version None)
Quarter: 2009Q3

REPORT INFORMATION
  Report Type: 
  Country: None (occurrence: None)
  Receive Date: 20090729
  Receipt Date: 20080319
  Transmission Date: 20100115
  Serious: Yes (Hospitalization, Other)
  Sender: FDA-Public Use
  Company Number: US-ASTRAZENECA-2007UW27063

PATIENT
  Age: 47 Year
  Sex: Male
  Weight: 91.6 kg

DRUGS (34)
  1. SEROQUEL [Suspect]
     Indication: BIPOLAR I DISORDER
     Route: 048
     Dates: start: 19940101, end: 20070101
  2. SEROQUEL [Suspect]
     Indication: DEPRESSION
     Route: 048
     Dates: start: 19940101, end: 20070101
  3. SEROQUEL [Suspect]
     Dosage: 25-400 MG
     Route: 048
     Dates: start: 19980918, end: 20070321
  4. SEROQUEL [Suspect]
     Dosage: 25-400 MG
     Route: 048
     Dates: start: 19980918, end: 20070321
  5. ABILIFY [Concomitant]
     Route: 048
     Dates: start: 20060101, end: 20070101
  6. HALOPERIDOL [Concomitant]
     Dates: start: 20020101
  7. RISPERDAL [Concomitant]
     Route: 048
  8. RISPERDAL [Concomitant]
     Dates: start: 19971125, end: 19971212
  9. ZYPREXA [Concomitant]
     Route: 048
  10. PROZAC [Concomitant]
     Route: 048
     Dates: start: 19940101
  11. PROZAC [Concomitant]
     Dosage: 60-180 MG
     Route: 048
     Dates: start: 20020828
  12. TRAZODONE [Concomitant]
     Dates: start: 20021209
  13. LEXAPRO [Concomitant]
     Dates: start: 20080701
  14. FLOMAX [Concomitant]
     Route: 048
     Dates: start: 20021209
  15. NEURONTIN [Concomitant]
     Dates: start: 19971212
  16. LORAZEPAM [Concomitant]
     Indication: SLEEP DISORDER
     Dosage: 0.5-3 MG
     Route: 048
     Dates: start: 20021209
  17. LITHIUM CARBONATE [Concomitant]
     Route: 048
     Dates: start: 20021209
  18. FLUOXETINE HCL [Concomitant]
     Route: 048
     Dates: start: 20021209
  19. ATENOLOL [Concomitant]
     Dates: start: 20021209
  20. SYNTHROID [Concomitant]
     Dosage: 0.1-0.2 MG
     Route: 048
     Dates: start: 20020828
  21. CELEBREX [Concomitant]
     Route: 048
     Dates: start: 20020828
  22. AMBIEN [Concomitant]
     Indication: SLEEP DISORDER
     Dosage: 10-12.5 MG
     Route: 048
     Dates: start: 20021209
  23. VESICARE [Concomitant]
     Route: 048
     Dates: start: 20060808
  24. NEXIUM [Concomitant]
     Indication: GASTROOESOPHAGEAL REFLUX DISEASE
     Dosage: 40
     Dates: start: 20050328
  25. MOBIC [Concomitant]
     Dosage: 7.5-75 MG
     Route: 048
     Dates: start: 20050328
  26. SOMA [Concomitant]
     Route: 048
     Dates: start: 20050328
  27. RITALIN [Concomitant]
     Indication: ATTENTION DEFICIT/HYPERACTIVITY DISORDER
     Route: 048
     Dates: start: 20050328
  28. DIAZEPAM [Concomitant]
     Dates: start: 19971125
  29. EFFEXOR [Concomitant]
     Dates: start: 19971125
  30. ZOLOFT [Concomitant]
     Dates: start: 19971125
  31. STELAZINE [Concomitant]
     Dates: start: 19971125
  32. WELLBUTRIN [Concomitant]
     Dates: start: 19971212
  33. DEPAKOTE [Concomitant]
     Dosage: 100-400
     Dates: start: 19971212
  34. BUSPAR [Concomitant]
     Dosage: THREE TIMES A DAY
     Dates: start: 19971212

REACTIONS (17)
  - BLOOD CHOLESTEROL INCREASED [None]
  - DIABETES MELLITUS [None]
  - HAEMATURIA [None]
  - HYPERCHOLESTEROLAEMIA [None]
  - HYPERTONIC BLADDER [None]
  - KNEE ARTHROPLASTY [None]
  - MUSCULOSKELETAL PAIN [None]
  - NEPHROLITHIASIS [None]
  - OBESITY [None]
  - PATELLA FRACTURE [None]
  - RENAL DISORDER [None]
  - RENAL FAILURE [None]
  - RHABDOMYOLYSIS [None]
  - SLEEP APNOEA SYNDROME [None]
  - TARDIVE DYSKINESIA [None]
  - TYPE 2 DIABETES MELLITUS [None]
  - URINARY TRACT INFECTION [None]
